FAERS Safety Report 4467676-4 (Version None)
Quarter: 2004Q4

REPORT INFORMATION
  Report Type: 
  Country: None (occurrence: None)
  Receive Date: 20041005
  Receipt Date: 20040922
  Transmission Date: 20050328
  Serious: Yes (Other)
  Sender: FDA-Public Use
  Company Number: 2004068802

PATIENT
  Sex: Male

DRUGS (1)
  1. DRAMAMINE-D TAB [Suspect]
     Dosage: 12 TABLETS ONCE, ORAL
     Route: 048
     Dates: start: 20040922, end: 20040922

REACTIONS (3)
  - HALLUCINATION [None]
  - INCOHERENT [None]
  - OVERDOSE [None]
